FAERS Safety Report 15554356 (Version 1)
Quarter: 2018Q4

REPORT INFORMATION
  Report Type: Spontaneous
  Country: US (occurrence: US)
  Receive Date: 20181026
  Receipt Date: 20181026
  Transmission Date: 20190205
  Serious: No
  Sender: FDA-Public Use
  Company Number: US-SA-2018SA017740

PATIENT
  Sex: Male
  Weight: 94.33 kg

DRUGS (4)
  1. EPINEPHRINE. [Concomitant]
     Active Substance: EPINEPHRINE
     Indication: ANAPHYLACTIC REACTION
     Dosage: 1 INJECTION
     Route: 030
     Dates: start: 20170927
  2. FABRAZYME [Suspect]
     Active Substance: AGALSIDASE BETA
     Indication: LIPIDOSIS
     Dosage: 80 MG,95 MG,QOW
     Route: 041
     Dates: start: 20170927
  3. PARACETAMOL [Concomitant]
     Active Substance: ACETAMINOPHEN
     Dosage: 2 DF,PRN
     Route: 048
     Dates: start: 20170927
  4. TEGRETOL [Concomitant]
     Active Substance: CARBAMAZEPINE
     Dosage: 100 MG,UNK
     Route: 048
     Dates: start: 20170929

REACTIONS (1)
  - Infusion related reaction [Unknown]
